FAERS Safety Report 18189057 (Version 3)
Quarter: 2021Q2

REPORT INFORMATION
  Report Type: Report from Study
  Country: DE (occurrence: DE)
  Receive Date: 20200824
  Receipt Date: 20210611
  Transmission Date: 20210717
  Serious: Yes (Hospitalization)
  Sender: FDA-Public Use
  Company Number: DE-SEATTLE GENETICS-2020SGN03649

PATIENT

DRUGS (8)
  1. DACARBAZINE. [Suspect]
     Active Substance: DACARBAZINE
     Indication: HODGKIN^S DISEASE
     Dosage: 250 MILLIGRAM/SQ. METER
     Route: 065
     Dates: start: 20200730
  2. DEXAMETHASONE. [Suspect]
     Active Substance: DEXAMETHASONE
     Indication: HODGKIN^S DISEASE
     Dosage: 40 MILLIGRAM/SQ. METER
     Route: 065
     Dates: start: 20200729
  3. ETOPOSIDE. [Suspect]
     Active Substance: ETOPOSIDE
     Indication: HODGKIN^S DISEASE
     Dosage: 150 MILLIGRAM/SQ. METER
     Route: 065
     Dates: start: 20200729
  4. LIPEGFILGRASTIM [Suspect]
     Active Substance: LIPEGFILGRASTIM
     Indication: PRODUCT USED FOR UNKNOWN INDICATION
     Dosage: 6 MILLIGRAM
     Route: 065
     Dates: start: 20200619
  5. CYCLOPHOSPHAMIDE. [Suspect]
     Active Substance: CYCLOPHOSPHAMIDE
     Indication: HODGKIN^S DISEASE
     Dosage: 12.50 MILLIGRAM/SQ. METER
     Route: 065
     Dates: start: 20200729
  6. COTRIM [Concomitant]
     Active Substance: SULFAMETHOXAZOLE\TRIMETHOPRIM
     Dosage: 960 MILLIGRAM
     Dates: start: 2020, end: 20200814
  7. BRENTUXIMAB VEDOTIN?MPI [Suspect]
     Active Substance: BRENTUXIMAB VEDOTIN
     Indication: HODGKIN^S DISEASE
     Dosage: 110 MILLIGRAM/KILOGRAM
     Route: 065
     Dates: start: 20200723
  8. DOXORUBICIN [Suspect]
     Active Substance: DOXORUBICIN
     Indication: HODGKIN^S DISEASE
     Dosage: 40 MILLIGRAM/SQ. METER
     Route: 065
     Dates: start: 20200730

REACTIONS (1)
  - Bone pain [Recovered/Resolved]

NARRATIVE: CASE EVENT DATE: 20200813
